FAERS Safety Report 8266720-6 (Version None)
Quarter: 2012Q2

REPORT INFORMATION
  Report Type: 
  Country: None (occurrence: None)
  Receive Date: 20120409
  Receipt Date: 20120330
  Transmission Date: 20120825
  Serious: Yes (Hospitalization)
  Sender: FDA-Public Use
  Company Number: US-BIOGENIDEC-2012BI000820

PATIENT
  Age: 41 Year
  Sex: Female
  Weight: 113 kg

DRUGS (9)
  1. TYSABRI [Suspect]
     Indication: MULTIPLE SCLEROSIS
     Route: 042
     Dates: start: 20110429
  2. LISINOPRIL [Concomitant]
     Indication: HYPERTENSION
     Route: 048
  3. BACLOFEN [Concomitant]
     Route: 048
  4. ATENOLOL [Concomitant]
     Indication: HYPERTENSION
     Route: 048
  5. HYDROCHLOROTHIAZIDE [Concomitant]
     Indication: HYPERTENSION
     Route: 048
  6. OMEPRAZOLE [Concomitant]
     Route: 048
  7. GABAPENTIN [Concomitant]
     Route: 048
  8. NU IRON [Concomitant]
     Indication: IRON DEFICIENCY ANAEMIA
     Route: 048
  9. AMLODIPINE [Concomitant]
     Indication: HYPERTENSION
     Route: 048

REACTIONS (7)
  - ENCEPHALOPATHY [None]
  - ESCHERICHIA URINARY TRACT INFECTION [None]
  - HYPERTENSION [None]
  - PNEUMONIA [None]
  - IRON DEFICIENCY ANAEMIA [None]
  - ESCHERICHIA SEPSIS [None]
  - SINUSITIS [None]
